FAERS Safety Report 10408680 (Version 1)
Quarter: 2014Q3

REPORT INFORMATION
  Report Type: Report from Study
  Country: JP (occurrence: JP)
  Receive Date: 20140826
  Receipt Date: 20140826
  Transmission Date: 20150326
  Serious: Yes (Death, Hospitalization, Other)
  Sender: FDA-Public Use
  Company Number: JP-BAYER-2014-121011

PATIENT
  Age: 60 Year
  Sex: Male
  Weight: 47 kg

DRUGS (4)
  1. KERATINAMIN [Concomitant]
     Active Substance: UREA
     Indication: DRUG TOXICITY PROPHYLAXIS
     Dosage: UNK
     Route: 061
     Dates: start: 20140423, end: 20140515
  2. BESOFTEN [Concomitant]
     Active Substance: SODIUM ALGINATE
     Indication: DRUG TOXICITY PROPHYLAXIS
     Dosage: UNK
     Route: 061
     Dates: start: 20140423, end: 20140515
  3. STIVARGA [Suspect]
     Active Substance: REGORAFENIB
     Indication: RECTAL CANCER
     Dosage: 120 MG, QD, FOR 7 DAYS
     Route: 048
     Dates: start: 20140423, end: 20140429
  4. STIVARGA [Suspect]
     Active Substance: REGORAFENIB
     Indication: RECTAL CANCER
     Dosage: 160 MG, QD (2 WEEKS ON AND 1 WEEK OFF)
     Route: 048
     Dates: start: 20140430, end: 20140513

REACTIONS (4)
  - Rectal cancer [Fatal]
  - Intestinal obstruction [Not Recovered/Not Resolved]
  - Platelet count decreased [None]
  - Constipation [Not Recovered/Not Resolved]

NARRATIVE: CASE EVENT DATE: 20140425
